FAERS Safety Report 7945602-0 (Version None)
Quarter: 2011Q4

REPORT INFORMATION
  Report Type: 
  Country: None (occurrence: None)
  Receive Date: 20111129
  Receipt Date: 20111121
  Transmission Date: 20120403
  Serious: Yes (Other)
  Sender: FDA-Public Use
  Company Number: US-SANOFI-AVENTIS-2011SA076696

PATIENT
  Age: 64 Year
  Sex: Female

DRUGS (3)
  1. PRAVACHOL [Concomitant]
  2. PLAVIX [Suspect]
     Route: 048
     Dates: start: 20040101
  3. ASPIRIN [Concomitant]

REACTIONS (5)
  - DYSPHONIA [None]
  - MYOCARDIAL INFARCTION [None]
  - THROMBOSIS [None]
  - VOCAL CORD DISORDER [None]
  - GASTROOESOPHAGEAL REFLUX DISEASE [None]
